FAERS Safety Report 19133758 (Version 1)
Quarter: 2021Q2

REPORT INFORMATION
  Report Type: Spontaneous
  Country: US (occurrence: US)
  Receive Date: 20210414
  Receipt Date: 20210414
  Transmission Date: 20210717
  Serious: No
  Sender: FDA-Public Use
  Company Number: US-GILEAD-2021-0523643

PATIENT
  Sex: Female

DRUGS (13)
  1. HARVONI [Suspect]
     Active Substance: LEDIPASVIR\SOFOSBUVIR
     Indication: CHRONIC HEPATITIS C
     Dosage: 1 DOSAGE FORM, QD, FOR 8 WEEKS
     Route: 048
     Dates: start: 202103
  2. GARLIC [ALLIUM SATIVUM] [Concomitant]
     Active Substance: GARLIC
  3. LUTEIN [ZEAXANTHIN] [Concomitant]
     Active Substance: ZEAXANTHIN
  4. CALCIUM [Concomitant]
     Active Substance: CALCIUM
  5. GLUCOSAMINE [Concomitant]
     Active Substance: GLUCOSAMINE
  6. VITAMIN C [Concomitant]
     Active Substance: ASCORBIC ACID
  7. MELATONIN [Concomitant]
     Active Substance: MELATONIN
  8. POTASSIUM [Concomitant]
     Active Substance: POTASSIUM
  9. VITAMIN E NOS [Concomitant]
     Active Substance: .ALPHA.-TOCOPHEROL
  10. ENBREL [Concomitant]
     Active Substance: ETANERCEPT
  11. ASPIRIN 81 [Concomitant]
     Active Substance: ASPIRIN
  12. FISH OIL [Concomitant]
     Active Substance: FISH OIL
  13. VITAMINS NOS [Concomitant]
     Active Substance: VITAMINS

REACTIONS (1)
  - Product dose omission issue [Unknown]
